FAERS Safety Report 12880967 (Version 1)
Quarter: 2016Q4

REPORT INFORMATION
  Report Type: Spontaneous
  Country: US (occurrence: US)
  Receive Date: 20161025
  Receipt Date: 20161025
  Transmission Date: 20170207
  Serious: Yes (Hospitalization)
  Sender: FDA-Public Use
  Company Number: None

PATIENT
  Age: 67 Year
  Sex: Female
  Weight: 67.7 kg

DRUGS (9)
  1. MORPHINE [Concomitant]
     Active Substance: MORPHINE
  2. BENAZEPRIL [Suspect]
     Active Substance: BENAZEPRIL HYDROCHLORIDE
     Indication: HYPERTENSION
     Dosage: NIGHTLY??DATE OF USE CHRONIC
     Route: 048
  3. NEURONTIN [Concomitant]
     Active Substance: GABAPENTIN
  4. TRAMADOL. [Concomitant]
     Active Substance: TRAMADOL
  5. AMARYL [Concomitant]
     Active Substance: GLIMEPIRIDE
  6. FLORANEX [Concomitant]
     Active Substance: LACTOBACILLUS ACIDOPHILUS\LACTOBACILLUS DELBRUECKII SUBSP. BULGARICUS
  7. INDOMETHACIN. [Suspect]
     Active Substance: INDOMETHACIN
     Indication: BACK PAIN
     Dosage: TID WITH MEALS??DATES OF USE CHRONIC
     Route: 048
  8. ASA [Concomitant]
     Active Substance: ASPIRIN
  9. METFORMI [Concomitant]

REACTIONS (4)
  - Rhabdomyolysis [None]
  - Acute kidney injury [None]
  - Encephalopathy [None]
  - Dehydration [None]

NARRATIVE: CASE EVENT DATE: 20151014
